FAERS Safety Report 11482939 (Version 1)
Quarter: 2015Q3

REPORT INFORMATION
  Report Type: Spontaneous
  Country: US (occurrence: US)
  Receive Date: 20150903
  Receipt Date: 20150903
  Transmission Date: 20151125
  Serious: Yes (Other)
  Sender: FDA-Public Use
  Company Number: US-ELI_LILLY_AND_COMPANY-US201205006461

PATIENT
  Age: 57 Year
  Sex: Female

DRUGS (2)
  1. QUINAPRIL [Concomitant]
     Active Substance: QUINAPRIL\QUINAPRIL HYDROCHLORIDE
  2. CYMBALTA [Suspect]
     Active Substance: DULOXETINE HYDROCHLORIDE
     Indication: PAIN
     Dosage: 30 MG, QD
     Dates: start: 201202

REACTIONS (10)
  - Blood pressure increased [Unknown]
  - Coordination abnormal [Unknown]
  - Malaise [Unknown]
  - Asthenia [Unknown]
  - Tremor [Unknown]
  - Pain [Unknown]
  - Fatigue [Unknown]
  - Confusional state [Unknown]
  - Feeling abnormal [Unknown]
  - Abdominal pain upper [Unknown]
